FAERS Safety Report 23141911 (Version 1)
Quarter: 2023Q4

REPORT INFORMATION
  Report Type: Spontaneous
  Country: ES (occurrence: ES)
  Receive Date: 20231103
  Receipt Date: 20231103
  Transmission Date: 20240109
  Serious: Yes (Hospitalization, Other)
  Sender: FDA-Public Use
  Company Number: ES-AEMPS-1440006

PATIENT
  Age: 58 Year
  Sex: Male

DRUGS (2)
  1. BORTEZOMIB [Suspect]
     Active Substance: BORTEZOMIB
     Indication: Plasma cell myeloma
     Dosage: EVERY WEEK (1 CADA 7 D?AS)
     Route: 058
     Dates: start: 20230417, end: 20231006
  2. DEXAMETHASONE [Suspect]
     Active Substance: DEXAMETHASONE
     Indication: Plasma cell myeloma
     Dosage: 20 MILLIGRAM (20MG CUANDO TOMA BORTEZOMIB)
     Route: 048
     Dates: start: 20230417, end: 20231006

REACTIONS (3)
  - Acute psychosis [Recovered/Resolved]
  - Abnormal behaviour [Recovered/Resolved]
  - Encephalopathy [Recovered/Resolved]

NARRATIVE: CASE EVENT DATE: 20230901
